FAERS Safety Report 21984294 (Version 1)
Quarter: 2023Q1

REPORT INFORMATION
  Report Type: Spontaneous
  Country: US (occurrence: US)
  Receive Date: 20230213
  Receipt Date: 20230213
  Transmission Date: 20230417
  Serious: Yes (Disabling, Other)
  Sender: FDA-Public Use
  Company Number: US-AMGEN-USASP2023020600

PATIENT
  Age: 70 Year
  Sex: Female

DRUGS (1)
  1. PROLIA [Suspect]
     Active Substance: DENOSUMAB
     Indication: Osteoporosis
     Dosage: 60 MILLIGRAM, Q6MO
     Route: 065
     Dates: start: 2017

REACTIONS (3)
  - Spinal compression fracture [Not Recovered/Not Resolved]
  - Tooth extraction [Not Recovered/Not Resolved]
  - Dental cyst [Not Recovered/Not Resolved]

NARRATIVE: CASE EVENT DATE: 20220901
